FAERS Safety Report 19310548 (Version 2)
Quarter: 2021Q2

REPORT INFORMATION
  Report Type: Spontaneous
  Country: US (occurrence: US)
  Receive Date: 20210526
  Receipt Date: 20210629
  Transmission Date: 20210717
  Serious: No
  Sender: FDA-Public Use
  Company Number: US-ADVANZ PHARMA-202105003601

PATIENT

DRUGS (3)
  1. PREDNISOLONE. [Suspect]
     Active Substance: PREDNISOLONE
     Indication: EYE INFLAMMATION
     Dosage: UNK, QID
  2. PREDNISOLONE. [Suspect]
     Active Substance: PREDNISOLONE
     Indication: RETINAL OEDEMA
  3. METHOTREXATE. [Concomitant]
     Active Substance: METHOTREXATE
     Dosage: UNK

REACTIONS (1)
  - Drug ineffective [Unknown]
